FAERS Safety Report 20289570 (Version 2)
Quarter: 2022Q1

REPORT INFORMATION
  Report Type: Other
  Country: CN (occurrence: CN)
  Receive Date: 20220104
  Receipt Date: 20220124
  Transmission Date: 20220423
  Serious: Yes (Other)
  Sender: FDA-Public Use
  Company Number: CN-002147023-NVSC2020CN191855

PATIENT
  Age: 55 Year
  Sex: Male
  Weight: 60 kg

DRUGS (18)
  1. RANIBIZUMAB [Suspect]
     Active Substance: RANIBIZUMAB
     Indication: Diabetic retinal oedema
     Dosage: 0.05 UNK
     Route: 065
     Dates: start: 20200325
  2. RANIBIZUMAB [Suspect]
     Active Substance: RANIBIZUMAB
     Dosage: 0.05 UNK
     Route: 065
     Dates: start: 20200429
  3. RANIBIZUMAB [Suspect]
     Active Substance: RANIBIZUMAB
     Dosage: 0.05 UNK
     Route: 065
     Dates: start: 20200825
  4. RANIBIZUMAB [Suspect]
     Active Substance: RANIBIZUMAB
     Route: 031
  5. GLICLAZIDE [Concomitant]
     Active Substance: GLICLAZIDE
     Indication: Type 2 diabetes mellitus
     Dosage: 60 OT
     Route: 048
     Dates: start: 20180505
  6. ACARBOSE [Concomitant]
     Active Substance: ACARBOSE
     Indication: Type 2 diabetes mellitus
     Dosage: 1 OT
     Route: 048
     Dates: start: 20180505
  7. METFORMIN [Concomitant]
     Active Substance: METFORMIN HYDROCHLORIDE
     Indication: Type 2 diabetes mellitus
     Dosage: 0.5 OT
     Dates: start: 20180602
  8. VALSARTAN AND HYDROCHLOROTHIAZIDE [Concomitant]
     Active Substance: HYDROCHLOROTHIAZIDE\VALSARTAN
     Indication: Hypertension
     Dosage: 1 OT
     Route: 048
     Dates: start: 20180505
  9. VALSARTANA + ANLODIPINO [Concomitant]
     Indication: Hypertension
     Dosage: 01 OT
     Route: 048
     Dates: start: 20181020
  10. ASPIRIN [Concomitant]
     Active Substance: ASPIRIN
     Indication: Arterial occlusive disease
     Route: 048
     Dates: start: 20190829
  11. CLOPIDOGREL [Concomitant]
     Active Substance: CLOPIDOGREL BISULFATE
     Indication: Arterial occlusive disease
     Route: 048
     Dates: start: 20190829
  12. GLUCOBAY [Concomitant]
     Active Substance: ACARBOSE
     Indication: Type 2 diabetes mellitus
     Dosage: 1 DF
     Route: 048
     Dates: start: 20180505
  13. DICLOFENAC SODIUM [Concomitant]
     Active Substance: DICLOFENAC SODIUM
     Indication: Diabetic retinal oedema
     Dosage: UNK
     Route: 065
     Dates: start: 20200417
  14. ALOGLIPTIN BENZOATE [Concomitant]
     Active Substance: ALOGLIPTIN BENZOATE
     Indication: Type 2 diabetes mellitus
     Dosage: 25 UNK
     Route: 048
     Dates: start: 20200417
  15. DEXAMETHASONE [Concomitant]
     Active Substance: DEXAMETHASONE
     Indication: Diabetic retinal oedema
     Route: 057
     Dates: start: 20200429, end: 20200429
  16. COMPOUND TROPICAMIDE [Concomitant]
     Indication: Diabetic retinal oedema
     Route: 061
     Dates: start: 20200429, end: 20200429
  17. LEVOFLOXACIN HYDROCHLORIDE [Concomitant]
     Active Substance: LEVOFLOXACIN HYDROCHLORIDE
     Indication: Diabetic retinal oedema
     Route: 061
     Dates: start: 20200825, end: 20200826
  18. TOBRADEX [Concomitant]
     Active Substance: DEXAMETHASONE\TOBRAMYCIN
     Indication: Diabetic retinal oedema
     Route: 061
     Dates: start: 20200825, end: 20200826

REACTIONS (6)
  - Ocular hyperaemia [Recovered/Resolved]
  - Conjunctival haemorrhage [Recovered/Resolved]
  - Photophobia [Recovered/Resolved]
  - Lacrimation increased [Recovered/Resolved]
  - Sensation of foreign body [Recovered/Resolved]
  - Conjunctival hyperaemia [Not Recovered/Not Resolved]

NARRATIVE: CASE EVENT DATE: 20200325
